FAERS Safety Report 5595476-0 (Version None)
Quarter: 2008Q1

REPORT INFORMATION
  Report Type: 
  Country: None (occurrence: None)
  Receive Date: 20080116
  Receipt Date: 20080116
  Transmission Date: 20080703
  Serious: Yes (Hospitalization, Other)
  Sender: FDA-Public Use
  Company Number: None

PATIENT
  Sex: Male
  Weight: 86.6 kg

DRUGS (6)
  1. PHENYTOIN [Suspect]
     Indication: CONVULSION
     Dosage: 300MG  DAILY AT 4PM  ORAL
     Route: 048
     Dates: start: 20071202, end: 20071213
  2. ATORVASTATIN [Concomitant]
  3. AGGRENOX [Concomitant]
  4. LOSARTAN POTASSIUM [Concomitant]
  5. ATENOLOL [Concomitant]
  6. TERAZOSIN HCL [Concomitant]

REACTIONS (4)
  - ANTICONVULSANT DRUG LEVEL BELOW THERAPEUTIC [None]
  - GRAND MAL CONVULSION [None]
  - THERAPEUTIC RESPONSE UNEXPECTED WITH DRUG SUBSTITUTION [None]
  - TRANSIENT ISCHAEMIC ATTACK [None]
